FAERS Safety Report 6504701-0 (Version None)
Quarter: 2009Q4

REPORT INFORMATION
  Report Type: 
  Country: None (occurrence: None)
  Receive Date: 20091218
  Receipt Date: 20091110
  Transmission Date: 20100525
  Serious: No
  Sender: FDA-Public Use
  Company Number: A0787724A

PATIENT
  Age: 69 Year
  Sex: Female
  Weight: 72.3 kg

DRUGS (10)
  1. PROMACTA [Suspect]
     Indication: IDIOPATHIC THROMBOCYTOPENIC PURPURA
     Dosage: 75MG PER DAY
     Route: 048
     Dates: start: 20090523
  2. LANTUS [Concomitant]
  3. LISINOPRIL [Concomitant]
  4. POTASSIUM CHLORIDE [Concomitant]
  5. M.V.I. [Concomitant]
  6. CALCIUM GLUCONATE [Concomitant]
  7. DANAZOL [Concomitant]
     Dates: end: 20090617
  8. TYLENOL (CAPLET) [Concomitant]
  9. KLOR-CON [Concomitant]
  10. MULTI-VITAMIN [Concomitant]

REACTIONS (6)
  - BLOOD GLUCOSE INCREASED [None]
  - BLOOD PRESSURE INCREASED [None]
  - DRY MOUTH [None]
  - PLATELET COUNT DECREASED [None]
  - STRESS [None]
  - THIRST [None]
